FAERS Safety Report 11641853 (Version 2)
Quarter: 2015Q4

REPORT INFORMATION
  Report Type: Spontaneous
  Country: DE (occurrence: DE)
  Receive Date: 20151019
  Receipt Date: 20151104
  Transmission Date: 20160304
  Serious: Yes (Hospitalization)
  Sender: FDA-Public Use
  Company Number: DE-JNJFOC-20151013078

PATIENT
  Age: 81 Year
  Sex: Male

DRUGS (5)
  1. NEXIUM [Concomitant]
     Active Substance: ESOMEPRAZOLE MAGNESIUM
     Route: 065
  2. XARELTO [Suspect]
     Active Substance: RIVAROXABAN
     Indication: CEREBROVASCULAR ACCIDENT PROPHYLAXIS
     Route: 048
     Dates: start: 201412
  3. ATORVASTATIN [Concomitant]
     Active Substance: ATORVASTATIN
     Route: 065
  4. XARELTO [Suspect]
     Active Substance: RIVAROXABAN
     Indication: ATRIAL FIBRILLATION
     Route: 048
     Dates: start: 201412
  5. METOPROLOL [Concomitant]
     Active Substance: METOPROLOL
     Route: 065

REACTIONS (2)
  - Cerebral infarction [Recovering/Resolving]
  - Aphasia [Recovering/Resolving]

NARRATIVE: CASE EVENT DATE: 201508
